FAERS Safety Report 7979359-4 (Version None)
Quarter: 2011Q4

REPORT INFORMATION
  Report Type: 
  Country: None (occurrence: None)
  Receive Date: 20111214
  Receipt Date: 20111212
  Transmission Date: 20120403
  Serious: No
  Sender: FDA-Public Use
  Company Number: US-BAYER-2011-119479

PATIENT
  Age: 31 Year
  Sex: Female

DRUGS (1)
  1. MIRENA [Suspect]
     Indication: CONTRACEPTION
     Dosage: UNK
     Dates: start: 20110608, end: 20110610

REACTIONS (5)
  - PREMENSTRUAL SYNDROME [None]
  - HOT FLUSH [None]
  - VAGINAL DISCHARGE [None]
  - MOOD ALTERED [None]
  - PELVIC PAIN [None]
